FAERS Safety Report 16248073 (Version 4)
Quarter: 2021Q3

REPORT INFORMATION
  Report Type: Report from Study
  Country: GB (occurrence: GB)
  Receive Date: 20190428
  Receipt Date: 20210811
  Transmission Date: 20211014
  Serious: Yes (Other)
  Sender: FDA-Public Use
  Company Number: PHHY2019GB096390

PATIENT
  Sex: Female

DRUGS (1)
  1. COSENTYX [Suspect]
     Active Substance: SECUKINUMAB
     Indication: PSORIATIC ARTHROPATHY
     Dosage: 150 MG, QMO (PREFILLED PEN)
     Route: 065
     Dates: start: 20180823

REACTIONS (5)
  - Product dose omission issue [Unknown]
  - Infection [Unknown]
  - Psoriatic arthropathy [Recovering/Resolving]
  - Cellulitis [Unknown]
  - Malaise [Unknown]
